FAERS Safety Report 7512316-0 (Version None)
Quarter: 2011Q2

REPORT INFORMATION
  Report Type: 
  Country: None (occurrence: None)
  Receive Date: 20110531
  Receipt Date: 20110517
  Transmission Date: 20111010
  Serious: Yes (Hospitalization)
  Sender: FDA-Public Use
  Company Number: PHHY2011US43426

PATIENT
  Sex: Male

DRUGS (1)
  1. GLEEVEC [Suspect]
     Indication: LEUKAEMIA
     Dosage: 400 MG, DAILY
     Route: 048
     Dates: start: 20110419

REACTIONS (4)
  - DIARRHOEA [None]
  - ASTHMA [None]
  - VOMITING [None]
  - NAUSEA [None]
